FAERS Safety Report 14683967 (Version 1)
Quarter: 2018Q1

REPORT INFORMATION
  Report Type: Spontaneous
  Country: FR (occurrence: FR)
  Receive Date: 20180327
  Receipt Date: 20180327
  Transmission Date: 20180509
  Serious: Yes (Hospitalization)
  Sender: FDA-Public Use
  Company Number: FR-ELI_LILLY_AND_COMPANY-FR201704004055

PATIENT
  Age: 13 Year
  Sex: Male

DRUGS (7)
  1. FORSTEO [Suspect]
     Active Substance: TERIPARATIDE
     Indication: PARAESTHESIA
  2. LEVOTHYROX [Concomitant]
     Active Substance: LEVOTHYROXINE
     Indication: PRODUCT USED FOR UNKNOWN INDICATION
  3. VITAMIN B12 [Concomitant]
     Active Substance: CYANOCOBALAMIN
     Indication: PRODUCT USED FOR UNKNOWN INDICATION
  4. FORSTEO [Suspect]
     Active Substance: TERIPARATIDE
     Indication: BLOOD CALCIUM DECREASED
     Dosage: 20 UG, BID
     Route: 065
     Dates: start: 201607, end: 20170725
  5. FORSTEO [Suspect]
     Active Substance: TERIPARATIDE
     Indication: BLOOD PHOSPHORUS DECREASED
     Dosage: 30 UG, BID
     Route: 065
  6. FORSTEO [Suspect]
     Active Substance: TERIPARATIDE
     Indication: PARATHYROID DISORDER
  7. DOLIPRANE [Concomitant]
     Active Substance: ACETAMINOPHEN
     Indication: PRODUCT USED FOR UNKNOWN INDICATION

REACTIONS (13)
  - Drug dose omission [Unknown]
  - Prescribed overdose [Unknown]
  - Erythema [Unknown]
  - Pain in extremity [Unknown]
  - Blood calcium decreased [Unknown]
  - Off label use [Unknown]
  - Feeling hot [Unknown]
  - Myositis [Unknown]
  - Paraesthesia [Unknown]
  - Product storage error [Unknown]
  - Incorrect drug administration duration [Unknown]
  - Joint swelling [Unknown]
  - Hypoaesthesia [Unknown]

NARRATIVE: CASE EVENT DATE: 20170726
